FAERS Safety Report 23728168 (Version 2)
Quarter: 2024Q2

REPORT INFORMATION
  Report Type: Spontaneous
  Country: US (occurrence: US)
  Receive Date: 20240410
  Receipt Date: 20240613
  Transmission Date: 20240715
  Serious: No
  Sender: FDA-Public Use
  Company Number: US-MYLANLABS-2024M1028120

PATIENT
  Age: 82 Year
  Sex: Male
  Weight: 108.86 kg

DRUGS (1)
  1. WIXELA INHUB [Suspect]
     Active Substance: FLUTICASONE PROPIONATE\SALMETEROL XINAFOATE
     Indication: Dyspnoea
     Dosage: 250 MICROGRAM, BID (AT EIGHT IN THE MORNING AND EIGHT AT NIGHT) (250/50 MICROGRAM)
     Route: 055
     Dates: start: 202303

REACTIONS (2)
  - Device malfunction [Unknown]
  - Circumstance or information capable of leading to medication error [Unknown]

NARRATIVE: CASE EVENT DATE: 20240309
